FAERS Safety Report 16058668 (Version 2)
Quarter: 2019Q2

REPORT INFORMATION
  Report Type: Spontaneous
  Country: US (occurrence: US)
  Receive Date: 20190311
  Receipt Date: 20190419
  Transmission Date: 20190711
  Serious: Yes (Other)
  Sender: FDA-Public Use
  Company Number: US-ASTRAZENECA-2018SF14587

PATIENT
  Age: 605 Month
  Sex: Male
  Weight: 85.7 kg

DRUGS (16)
  1. SEPTRA [Concomitant]
     Active Substance: SULFAMETHOXAZOLE\TRIMETHOPRIM
  2. ATORVASTATIN [Concomitant]
     Active Substance: ATORVASTATIN
  3. CIALIS [Concomitant]
     Active Substance: TADALAFIL
  4. GABAPENTIN. [Concomitant]
     Active Substance: GABAPENTIN
  5. PERMETHRIN. [Concomitant]
     Active Substance: PERMETHRIN
  6. NOVOLOG [Concomitant]
     Active Substance: INSULIN ASPART
  7. SPIRONOLACTONE. [Concomitant]
     Active Substance: SPIRONOLACTONE
  8. FLONASE [Concomitant]
     Active Substance: FLUTICASONE PROPIONATE
  9. CLONIDINE. [Concomitant]
     Active Substance: CLONIDINE
  10. LANTUS [Concomitant]
     Active Substance: INSULIN GLARGINE
  11. PRILOSEC [Suspect]
     Active Substance: OMEPRAZOLE MAGNESIUM
     Route: 048
     Dates: start: 20120101, end: 20160101
  12. ASPIRIN. [Concomitant]
     Active Substance: ASPIRIN
  13. PRILOSEC OTC [Suspect]
     Active Substance: OMEPRAZOLE MAGNESIUM
     Route: 048
     Dates: start: 20120101, end: 20160101
  14. LISINOPRIL. [Concomitant]
     Active Substance: LISINOPRIL
  15. LASIX [Concomitant]
     Active Substance: FUROSEMIDE
  16. STENDRA [Concomitant]
     Active Substance: AVANAFIL

REACTIONS (4)
  - Acute kidney injury [Unknown]
  - Nephritis [Unknown]
  - Chronic kidney disease [Not Recovered/Not Resolved]
  - Renal injury [Unknown]

NARRATIVE: CASE EVENT DATE: 201501
